FAERS Safety Report 4336818-3 (Version None)
Quarter: 2004Q2

REPORT INFORMATION
  Report Type: 
  Country: None (occurrence: None)
  Receive Date: 20040408
  Receipt Date: 20040323
  Transmission Date: 20050107
  Serious: Yes (Hospitalization)
  Sender: FDA-Public Use
  Company Number: 190580

PATIENT
  Age: 45 Year
  Sex: Male
  Weight: 87.0906 kg

DRUGS (6)
  1. AVONEX [Suspect]
     Indication: MULTIPLE SCLEROSIS
     Dosage: 30 MCG QW IM
     Route: 030
     Dates: start: 19960701, end: 20000901
  2. PROVIGIL [Concomitant]
  3. FLOMAX [Concomitant]
  4. HYTRIN [Concomitant]
  5. BACLOFEN [Concomitant]
  6. AMITRIPTYLINE HCL [Concomitant]

REACTIONS (12)
  - BLOOD CHOLESTEROL INCREASED [None]
  - BORDERLINE PERSONALITY DISORDER [None]
  - CHEST PAIN [None]
  - CONTUSION [None]
  - FALL [None]
  - LUNG DISORDER [None]
  - MULTIPLE SCLEROSIS [None]
  - PANIC ATTACK [None]
  - ROAD TRAFFIC ACCIDENT [None]
  - SWELLING [None]
  - URINARY TRACT INFECTION [None]
  - VERTIGO [None]
